FAERS Safety Report 14085090 (Version 1)
Quarter: 2017Q4

REPORT INFORMATION
  Report Type: Spontaneous
  Country: US (occurrence: US)
  Receive Date: 20171013
  Receipt Date: 20171013
  Transmission Date: 20180321
  Serious: Yes (Death, Life-Threatening, Hospitalization, Other)
  Sender: FDA-Public Use
  Company Number: US-TORRENT-00003490

PATIENT
  Age: 66 Year
  Sex: Male

DRUGS (8)
  1. QUETIAPINE. [Suspect]
     Active Substance: QUETIAPINE
  2. HEPARIN [Concomitant]
     Active Substance: HEPARIN SODIUM
  3. CLOZAPINE. [Suspect]
     Active Substance: CLOZAPINE
  4. SENNOSIDE A+B [Concomitant]
     Active Substance: SENNOSIDES A AND B
  5. LANSOPRAZOLE. [Concomitant]
     Active Substance: LANSOPRAZOLE
  6. CARBAMAZEPINE. [Concomitant]
     Active Substance: CARBAMAZEPINE
  7. PHENYTOIN. [Concomitant]
     Active Substance: PHENYTOIN
  8. POLYETHYLENE GLYCOL [Concomitant]
     Active Substance: POLYETHYLENE GLYCOLS

REACTIONS (8)
  - Mental status changes [Unknown]
  - Gastric hypomotility [Recovered/Resolved]
  - Constipation [Recovered/Resolved]
  - Septic shock [Fatal]
  - Shock [Recovered/Resolved]
  - Gastrointestinal necrosis [Not Recovered/Not Resolved]
  - Abdominal distension [Recovered/Resolved]
  - Acute respiratory distress syndrome [Recovered/Resolved]
